FAERS Safety Report 10069185 (Version 2)
Quarter: 2014Q2

REPORT INFORMATION
  Report Type: Spontaneous
  Country: US (occurrence: US)
  Receive Date: 20140409
  Receipt Date: 20140409
  Transmission Date: 20141212
  Serious: No
  Sender: FDA-Public Use
  Company Number: US-ASTELLAS-2011US003202

PATIENT
  Age: 48 Year
  Sex: Female

DRUGS (1)
  1. PROTOPIC [Suspect]
     Indication: RASH
     Dosage: 0.1 %, UNKNOWN/D
     Route: 061

REACTIONS (2)
  - Off label use [Unknown]
  - Pruritus [Unknown]
